FAERS Safety Report 6559256-1 (Version None)
Quarter: 2010Q1

REPORT INFORMATION
  Report Type: 
  Country: None (occurrence: None)
  Receive Date: 20100129
  Receipt Date: 20090904
  Transmission Date: 20100710
  Serious: No
  Sender: FDA-Public Use
  Company Number: US-ABBOTT-09P-163-0590422-00

PATIENT
  Sex: Female
  Weight: 57.658 kg

DRUGS (13)
  1. HUMIRA [Suspect]
     Indication: CROHN'S DISEASE
     Dosage: WILL CONTINUE TO 80MG ON DAY 15 AND THEN 40MG EOW
     Route: 058
     Dates: start: 20090806, end: 20090806
  2. HUMIRA [Suspect]
     Dates: start: 20090806
  3. METOPROLOL [Concomitant]
     Indication: HYPERTENSION
  4. LISINOPRIL [Concomitant]
     Indication: HYPERTENSION
  5. LEXAPRO [Concomitant]
     Indication: DRUG USE FOR UNKNOWN INDICATION
  6. VITAMIN D [Concomitant]
     Indication: VITAMIN SUPPLEMENTATION
  7. AMIODARONE [Concomitant]
     Indication: HEART RATE IRREGULAR
  8. LOMOTIL [Concomitant]
     Indication: CROHN'S DISEASE
  9. FORTICAL [Concomitant]
     Indication: MINERAL SUPPLEMENTATION
     Dosage: SPRAY DAILY
     Route: 045
  10. VITAMIN B-12 [Concomitant]
     Indication: CROHN'S DISEASE
  11. CALCIUM W/VITAMIN D [Concomitant]
     Indication: MINERAL SUPPLEMENTATION
  12. NEXIUM [Concomitant]
     Indication: GASTROOESOPHAGEAL REFLUX DISEASE
  13. FORTEO [Concomitant]
     Indication: DRUG USE FOR UNKNOWN INDICATION

REACTIONS (5)
  - ABDOMINAL PAIN UPPER [None]
  - DIARRHOEA [None]
  - DYSPEPSIA [None]
  - LOCAL SWELLING [None]
  - RASH MACULAR [None]
